FAERS Safety Report 22300307 (Version 2)
Quarter: 2023Q2

REPORT INFORMATION
  Report Type: Report from Study
  Country: GB (occurrence: None)
  Receive Date: 20230509
  Receipt Date: 20230515
  Transmission Date: 20230722
  Serious: Yes (Disabling, Other)
  Sender: FDA-Public Use
  Company Number: GB-CDN-EMD Serono,a division of EMD Inc.-9400374

PATIENT
  Sex: Female

DRUGS (4)
  1. MAVENCLAD [Suspect]
     Active Substance: CLADRIBINE
     Indication: Multiple sclerosis
     Dosage: YEAR ONE WEEK ONE THERAPY
     Route: 048
     Dates: start: 201902
  2. MAVENCLAD [Suspect]
     Active Substance: CLADRIBINE
     Dosage: YEAR ONE WEEK FIVE THERAPY: TWO TABLETS ON DAY 1 AND ONE TABLET ON DAYS 2 TO 5
     Route: 048
  3. MAVENCLAD [Suspect]
     Active Substance: CLADRIBINE
     Dosage: YEAR TWO WEEK ONE THERAPY
     Route: 048
     Dates: start: 20230331
  4. MAVENCLAD [Suspect]
     Active Substance: CLADRIBINE
     Dosage: YEAR TWO WEEK FIVE THERAPY: 2 TABLETS ON DAYS 1 AND 2 AND 1 ON DAYS 3 TO 5, COMPLETED ON 23 APRIL.
     Route: 048

REACTIONS (4)
  - Labyrinthitis [Unknown]
  - Cerumen impaction [Unknown]
  - Deafness unilateral [Unknown]
  - Memory impairment [Unknown]
